FAERS Safety Report 6456147-1 (Version None)
Quarter: 2009Q4

REPORT INFORMATION
  Report Type: 
  Country: None (occurrence: None)
  Receive Date: 20091124
  Receipt Date: 20091124
  Transmission Date: 20100525
  Serious: Yes (Hospitalization)
  Sender: FDA-Public Use
  Company Number: None

PATIENT
  Age: 64 Year
  Sex: Male
  Weight: 44.4525 kg

DRUGS (3)
  1. LIPITOR [Suspect]
     Indication: DYSLIPIDAEMIA
     Dosage: 80 MG HS PO HOME MED
     Route: 048
  2. GEMFIBROZIL [Suspect]
     Dosage: 600MG BID PO
     Route: 048
  3. NIASPAN [Suspect]
     Indication: DYSLIPIDAEMIA
     Dosage: 500MG HS PO
     Route: 048

REACTIONS (9)
  - ATAXIA [None]
  - BACK INJURY [None]
  - DYSPNOEA EXERTIONAL [None]
  - FALL [None]
  - HEAD INJURY [None]
  - HEPATOTOXICITY [None]
  - INJURY [None]
  - POLYMYOSITIS [None]
  - RHABDOMYOLYSIS [None]
